FAERS Safety Report 17461266 (Version 1)
Quarter: 2020Q1

REPORT INFORMATION
  Report Type: Spontaneous
  Country: DE (occurrence: DE)
  Receive Date: 20200226
  Receipt Date: 20200226
  Transmission Date: 20200409
  Serious: Yes (Hospitalization)
  Sender: FDA-Public Use
  Company Number: DE-TEVA-2020-DE-1189868

PATIENT
  Age: 87 Year
  Sex: Female
  Weight: 74 kg

DRUGS (16)
  1. BENSERAZID/LEVODOPA [Interacting]
     Active Substance: BENSERAZIDE\LEVODOPA
     Dosage: 25|100 MG, 0-0-0-1
     Route: 048
  2. OXYCODONE [Suspect]
     Active Substance: OXYCODONE
     Dosage: 5 MG, NEED
     Route: 048
  3. PREGABALIN. [Suspect]
     Active Substance: PREGABALIN
     Dosage: 75 MG, 1-0-0-2
     Route: 048
  4. DULOXETINE. [Suspect]
     Active Substance: DULOXETINE
     Dosage: 60 MG, 1-1-0-0
     Route: 048
  5. ACETYLSALICYLS?URE [Concomitant]
     Active Substance: ASPIRIN
     Dosage: 100 MG, 0-1-0-0
     Route: 048
  6. LEVOTHYROXIN-NATRIUM [Concomitant]
     Active Substance: LEVOTHYROXINE SODIUM
     Dosage: 50 ?G, 1-0-0-0
     Route: 048
  7. TIOTROPIUMBROMID [Concomitant]
     Dosage: 18 ?G, 1-0-0-0
     Route: 055
  8. CALCIUMACETAT-NEFRO 500MG [Concomitant]
     Dosage: 500 MG, 1-0-1-0
     Route: 048
  9. COLECALCIFEROL (VITAMIN D) [Concomitant]
     Dosage: 20000 IE / WOCHE
     Route: 048
  10. PRAMIPEXOLE. [Suspect]
     Active Substance: PRAMIPEXOLE
     Dosage: 0.18 MG, 0-0-0-2
     Route: 048
  11. CARBIDOPA AND LEVODOPA [Suspect]
     Active Substance: CARBIDOPA\LEVODOPA
     Dosage: 25|100 MG, BEDARF
     Route: 048
  12. FENTANYL. [Suspect]
     Active Substance: FENTANYL
     Dosage: 75 PG/H, CHANGE EVERY 3D
     Route: 062
  13. TORASEMIDE [Suspect]
     Active Substance: TORSEMIDE
     Dosage: 10 MG, 1-0-0-0
     Route: 048
  14. PANTOPRAZOL [Concomitant]
     Active Substance: PANTOPRAZOLE SODIUM
     Dosage: 40 MG, 1-0-0-0
     Route: 048
  15. FLUTICASON/SALMETEROL [Concomitant]
     Dosage: 250|50 ?G, 1-0-1-0
     Route: 055
  16. PREDNISOLON [Concomitant]
     Active Substance: PREDNISOLONE
     Dosage: 20 MG, 0.5-0-0-0
     Route: 048

REACTIONS (6)
  - Product prescribing error [Unknown]
  - Tremor [Unknown]
  - Hypophagia [Unknown]
  - Medication error [Unknown]
  - General physical health deterioration [Unknown]
  - Labelled drug-drug interaction medication error [Unknown]

NARRATIVE: CASE EVENT DATE: 20190801
